FAERS Safety Report 17989055 (Version 2)
Quarter: 2020Q3

REPORT INFORMATION
  Report Type: Spontaneous
  Country: US (occurrence: US)
  Receive Date: 20200707
  Receipt Date: 20200710
  Transmission Date: 20201103
  Serious: Yes (Death, Other)
  Sender: FDA-Public Use
  Company Number: US-PFIZER INC-2020257946

PATIENT
  Age: 61 Year
  Sex: Male
  Weight: 54 kg

DRUGS (4)
  1. HEPARIN SODIUM. [Suspect]
     Active Substance: HEPARIN SODIUM
     Indication: THROMBOPHLEBITIS
     Dosage: 10000 IU (LOADING DOSE)
     Route: 042
  2. HEPARIN SODIUM. [Suspect]
     Active Substance: HEPARIN SODIUM
     Dosage: 600 IU/KG (BODY WEIGHT.24 HOURS)
     Route: 042
  3. HEPARIN SODIUM. [Suspect]
     Active Substance: HEPARIN SODIUM
     Indication: PULMONARY EMBOLISM
     Dosage: 30000 IU, DAILY(WAS GIVEN FOR NEXT 13 DAYS)
     Route: 042
  4. DIGITALIS [Concomitant]
     Active Substance: DIGITALIS
     Indication: CARDIAC FAILURE CONGESTIVE
     Dosage: UNK

REACTIONS (4)
  - Disseminated intravascular coagulation [Fatal]
  - Platelet aggregation test [Fatal]
  - Drug ineffective [Unknown]
  - Brain stem syndrome [Fatal]
